FAERS Safety Report 10791690 (Version 1)
Quarter: 2015Q1

REPORT INFORMATION
  Report Type: Spontaneous
  Country: US (occurrence: US)
  Receive Date: 20150213
  Receipt Date: 20150213
  Transmission Date: 20150721
  Serious: No
  Sender: FDA-Public Use
  Company Number: US-GLAXOSMITHKLINE-A1081571A

PATIENT

DRUGS (12)
  1. NICODERM CQ [Suspect]
     Active Substance: NICOTINE
     Indication: EX-TOBACCO USER
     Dates: start: 20140401, end: 20140415
  2. NICODERM CQ [Suspect]
     Active Substance: NICOTINE
  3. NICODERM CQ [Suspect]
     Active Substance: NICOTINE
     Indication: EX-TOBACCO USER
  4. NICODERM CQ [Suspect]
     Active Substance: NICOTINE
  5. NICODERM CQ [Suspect]
     Active Substance: NICOTINE
  6. NICODERM CQ [Suspect]
     Active Substance: NICOTINE
     Indication: EX-TOBACCO USER
     Dates: start: 20140318
  7. NICODERM CQ [Suspect]
     Active Substance: NICOTINE
  8. NICODERM CQ [Suspect]
     Active Substance: NICOTINE
  9. NICODERM CQ [Suspect]
     Active Substance: NICOTINE
     Indication: EX-TOBACCO USER
     Dates: start: 20140401, end: 20140415
  10. NICODERM CQ [Suspect]
     Active Substance: NICOTINE
     Indication: EX-TOBACCO USER
     Dates: start: 20140221
  11. NICODERM CQ [Suspect]
     Active Substance: NICOTINE
     Indication: EX-TOBACCO USER
     Dates: start: 20140401, end: 20140415
  12. NICODERM CQ [Suspect]
     Active Substance: NICOTINE

REACTIONS (3)
  - Malaise [Not Recovered/Not Resolved]
  - Dyspnoea [Unknown]
  - Overdose [Unknown]
